FAERS Safety Report 6839015-2 (Version None)
Quarter: 2010Q3

REPORT INFORMATION
  Report Type: 
  Country: None (occurrence: None)
  Receive Date: 20100713
  Receipt Date: 20080820
  Transmission Date: 20110219
  Serious: Yes (Other)
  Sender: FDA-Public Use
  Company Number: US-PFIZER INC-2007048688

PATIENT
  Sex: Female
  Weight: 98 kg

DRUGS (4)
  1. CHANTIX [Suspect]
     Indication: SMOKING CESSATION THERAPY
     Dates: start: 20070509, end: 20070101
  2. TYLENOL PM [Suspect]
     Indication: INSOMNIA
     Dates: start: 20070610
  3. CALCIUM [Concomitant]
  4. MULTI-VITAMINS [Concomitant]

REACTIONS (10)
  - ABDOMINAL DISTENSION [None]
  - CHEST PAIN [None]
  - COLD SWEAT [None]
  - FATIGUE [None]
  - FLATULENCE [None]
  - INCORRECT DOSE ADMINISTERED [None]
  - PAIN [None]
  - SLEEP DISORDER [None]
  - VOMITING [None]
  - WEIGHT INCREASED [None]
